FAERS Safety Report 16004196 (Version 2)
Quarter: 2019Q2

REPORT INFORMATION
  Report Type: Spontaneous
  Country: US (occurrence: US)
  Receive Date: 20190226
  Receipt Date: 20190522
  Transmission Date: 20190711
  Serious: No
  Sender: FDA-Public Use
  Company Number: US-UNITED THERAPEUTICS-UNT-2019-003225

PATIENT
  Age: 63 Year
  Sex: Female

DRUGS (3)
  1. REMODULIN [Suspect]
     Active Substance: TREPROSTINIL
     Indication: PULMONARY ARTERIAL HYPERTENSION
     Dosage: 0.0445 ?G/KG, CONTINUING
     Route: 058
     Dates: start: 20171012
  2. REMODULIN [Suspect]
     Active Substance: TREPROSTINIL
     Dosage: UNK UNK, CONTINUING
     Route: 058
     Dates: start: 201902
  3. REMODULIN [Suspect]
     Active Substance: TREPROSTINIL
     Dosage: 0.0445 ?G/KG, CONTINUING
     Route: 058
     Dates: start: 20181120

REACTIONS (4)
  - Bacterial diarrhoea [Unknown]
  - Vomiting [Unknown]
  - Salmonellosis [Unknown]
  - Hypertension [Unknown]

NARRATIVE: CASE EVENT DATE: 20190502
